FAERS Safety Report 6655862-4 (Version None)
Quarter: 2010Q1

REPORT INFORMATION
  Report Type: 
  Country: None (occurrence: None)
  Receive Date: 20100329
  Receipt Date: 20100315
  Transmission Date: 20100710
  Serious: Yes (Hospitalization)
  Sender: FDA-Public Use
  Company Number: NL-CELGENEUS-114-20785-10031355

PATIENT
  Sex: Male

DRUGS (7)
  1. THALIDOMIDE CELGENE [Suspect]
     Indication: MULTIPLE MYELOMA
     Route: 048
     Dates: start: 20100211, end: 20100309
  2. MELPHALAN HYDROCHLORIDE [Suspect]
     Indication: MULTIPLE MYELOMA
     Route: 048
     Dates: start: 20100211, end: 20100214
  3. PREDNISOLONE [Suspect]
     Indication: MULTIPLE MYELOMA
     Route: 048
     Dates: start: 20100211, end: 20100214
  4. OSCAL [Concomitant]
     Indication: PROPHYLAXIS
     Route: 048
     Dates: start: 20100114, end: 20100311
  5. OMEPRAZOLE [Concomitant]
     Indication: PROPHYLAXIS
     Route: 048
     Dates: start: 20100114, end: 20100311
  6. ALLOPURINOL [Concomitant]
     Indication: GOUT
     Route: 048
     Dates: start: 20030101, end: 20100311
  7. ANDRIOL [Concomitant]
     Indication: HYPOGONADISM
     Route: 048
     Dates: start: 20040601, end: 20100311

REACTIONS (1)
  - INTERSTITIAL LUNG DISEASE [None]
